FAERS Safety Report 5926317-7 (Version None)
Quarter: 2008Q4

REPORT INFORMATION
  Report Type: 
  Country: None (occurrence: None)
  Receive Date: 20081017
  Receipt Date: 20081008
  Transmission Date: 20090506
  Serious: Yes (Other)
  Sender: FDA-Public Use
  Company Number: 2008SP020582

PATIENT
  Age: 3 Year
  Sex: Female

DRUGS (1)
  1. DESLORATADINE [Suspect]
     Indication: EAR INFECTION
     Dosage: 2.5 MG;QD;PO
     Route: 048

REACTIONS (5)
  - AGITATION [None]
  - DELIRIUM [None]
  - ERYTHEMA [None]
  - NIGHTMARE [None]
  - SLEEP DISORDER [None]
